FAERS Safety Report 5164324-5 (Version None)
Quarter: 2006Q4

REPORT INFORMATION
  Report Type: 
  Country: None (occurrence: None)
  Receive Date: 20061127
  Receipt Date: 20061127
  Transmission Date: 20070319
  Serious: Yes (Hospitalization, Other)
  Sender: FDA-Public Use
  Company Number: None

PATIENT
  Age: 5 Year
  Sex: Male
  Weight: 22 kg

DRUGS (3)
  1. ZOFRAN [Suspect]
     Indication: NAUSEA
     Dosage: 2MG ONCE IV BOLUS
     Route: 040
     Dates: start: 20061114, end: 20061114
  2. ZOFRAN [Suspect]
     Indication: VOMITING
     Dosage: 2MG ONCE IV BOLUS
     Route: 040
     Dates: start: 20061114, end: 20061114
  3. SODIUM CHLORIDE [Concomitant]

REACTIONS (3)
  - BLINDNESS TRANSIENT [None]
  - GRAND MAL CONVULSION [None]
  - HYPERTENSIVE CRISIS [None]
